FAERS Safety Report 24590605 (Version 1)
Quarter: 2024Q4

REPORT INFORMATION
  Report Type: Spontaneous
  Country: US (occurrence: US)
  Receive Date: 20241107
  Receipt Date: 20241107
  Transmission Date: 20250115
  Serious: Yes (Death, Other)
  Sender: DR REDDYS
  Company Number: US-DRL-USA-LIT/USA/24/0016483

PATIENT
  Age: 23 Year
  Sex: Male

DRUGS (2)
  1. SIROLIMUS [Suspect]
     Active Substance: SIROLIMUS
     Indication: Bone marrow conditioning regimen
  2. BUSULFAN [Suspect]
     Active Substance: BUSULFAN
     Indication: Bone marrow conditioning regimen

REACTIONS (6)
  - Pulmonary alveolar haemorrhage [Fatal]
  - Cardiac arrest [Unknown]
  - Toxicity to various agents [Unknown]
  - Rash erythematous [Recovering/Resolving]
  - Mucosal inflammation [Recovering/Resolving]
  - Product use in unapproved indication [Unknown]
